FAERS Safety Report 4605911-X (Version None)
Quarter: 2005Q1

REPORT INFORMATION
  Report Type: 
  Country: None (occurrence: None)
  Receive Date: 20050303
  Receipt Date: 20041117
  Transmission Date: 20050727
  Serious: No
  Sender: FDA-Public Use
  Company Number: 200421033BWH

PATIENT
  Sex: Male

DRUGS (1)
  1. LEVITRA [Suspect]
     Indication: ERECTILE DYSFUNCTION
     Dosage: 20 MG, TOTAL DAILY, ORAL ; SEE IMAGE
     Route: 048

REACTIONS (4)
  - GASTROINTESTINAL DISORDER [None]
  - HEADACHE [None]
  - NASAL CONGESTION [None]
  - PHOTOPHOBIA [None]
